FAERS Safety Report 9109600 (Version 1)
Quarter: 2013Q1

REPORT INFORMATION
  Report Type: Spontaneous
  Country: MX (occurrence: MX)
  Receive Date: 20130222
  Receipt Date: 20130222
  Transmission Date: 20140127
  Serious: Yes (Other)
  Sender: FDA-Public Use
  Company Number: PHHY2013MX016862

PATIENT
  Age: 76 Year
  Sex: Female

DRUGS (3)
  1. GALVUS [Suspect]
     Indication: DIABETES MELLITUS
     Dosage: 2 DF (50 MG), DAILY
     Route: 048
  2. DIOVAN [Suspect]
     Indication: BLOOD PRESSURE
     Dosage: UNK UKN, UNK
     Dates: start: 2006
  3. VARITON [Concomitant]
     Indication: CARDIOVASCULAR DISORDER
     Dosage: 1 UKN, DAILY

REACTIONS (3)
  - Diverticulum intestinal [Not Recovered/Not Resolved]
  - Colonic fistula [Not Recovered/Not Resolved]
  - Vesical fistula [Not Recovered/Not Resolved]
